FAERS Safety Report 9870743 (Version 2)
Quarter: 2014Q2

REPORT INFORMATION
  Report Type: Spontaneous
  Country: US (occurrence: US)
  Receive Date: 20140205
  Receipt Date: 20140502
  Transmission Date: 20141212
  Serious: No
  Sender: FDA-Public Use
  Company Number: US-PFIZER INC-2014029975

PATIENT
  Sex: Male

DRUGS (4)
  1. NEURONTIN [Suspect]
     Indication: INTERVERTEBRAL DISC PROTRUSION
     Dosage: 300 MG, TID PRN
     Route: 048
     Dates: start: 201201, end: 2014
  2. NEURONTIN [Suspect]
     Indication: NERVE INJURY
  3. NEURONTIN [Suspect]
     Indication: LUMBAR RADICULOPATHY
  4. HYDROCODONE [Concomitant]
     Indication: PAIN
     Dosage: 7.5/325 1 DOSE QID PRN
     Dates: start: 20131107

REACTIONS (6)
  - Off label use [Unknown]
  - Hyperglycaemia [Unknown]
  - Dizziness [Unknown]
  - Fatigue [Unknown]
  - Hyporeflexia [Unknown]
  - Stress [Unknown]
